FAERS Safety Report 4680248-1 (Version None)
Quarter: 2005Q2

REPORT INFORMATION
  Report Type: 
  Country: None (occurrence: None)
  Receive Date: 20050525
  Receipt Date: 20050512
  Transmission Date: 20051028
  Serious: Yes (Hospitalization)
  Sender: FDA-Public Use
  Company Number: 603590

PATIENT
  Age: 82 Year
  Sex: Female

DRUGS (1)
  1. POLYGAM S/D [Suspect]
     Dosage: 180 CC; QH

REACTIONS (9)
  - BLOOD IMMUNOGLOBULIN M INCREASED [None]
  - BLOOD UREA INCREASED [None]
  - CEREBRAL ARTERY OCCLUSION [None]
  - CEREBRAL INFARCTION [None]
  - COAGULOPATHY [None]
  - DEHYDRATION [None]
  - GLOBULINS INCREASED [None]
  - ISCHAEMIC STROKE [None]
  - PLASMA VISCOSITY DECREASED [None]
